FAERS Safety Report 10080546 (Version 1)
Quarter: 2014Q2

REPORT INFORMATION
  Report Type: Spontaneous
  Country: FR (occurrence: FR)
  Receive Date: 20140416
  Receipt Date: 20140416
  Transmission Date: 20141212
  Serious: Yes (Other)
  Sender: FDA-Public Use
  Company Number: FR-009507513-1404FRA004640

PATIENT
  Age: 1 Month
  Sex: Female
  Weight: 3.8 kg

DRUGS (1)
  1. TIENAM 500MG/500MG, POUDRE POUR PERFUSION [Suspect]
     Indication: URINARY TRACT INFECTION
     Dosage: 30 MG/KG, TID
     Route: 042
     Dates: start: 20140219, end: 20140222

REACTIONS (1)
  - Injection site pallor [Recovered/Resolved]
